FAERS Safety Report 5926478-X (Version None)
Quarter: 2008Q4

REPORT INFORMATION
  Report Type: 
  Country: None (occurrence: None)
  Receive Date: 20081022
  Receipt Date: 20081014
  Transmission Date: 20090506
  Serious: Yes (Other)
  Sender: FDA-Public Use
  Company Number: PHHY2008CA18135

PATIENT
  Sex: Male

DRUGS (14)
  1. RASILEZ [Suspect]
     Indication: BLOOD PRESSURE INCREASED
     Dosage: 150 MG, BID
     Route: 048
     Dates: start: 20080603, end: 20080624
  2. ACE INHIBITOR NOS [Concomitant]
  3. RENIN-ANGIOTENSIN SYSTEM, AGENTS ACTING ON [Concomitant]
  4. ANGIOTENSIN CONVERTING ENZYME BLOCKERS [Concomitant]
  5. ASPIRIN [Concomitant]
  6. LIPITOR [Concomitant]
     Dosage: 80, QD
     Route: 048
  7. LASIX [Concomitant]
     Dosage: 40, QD
     Route: 048
  8. NORVASC [Concomitant]
     Dosage: 5, QD
     Route: 048
  9. COVERSYL [Concomitant]
     Dosage: 16, BID
     Route: 048
  10. TEVETEN [Concomitant]
     Dosage: 600, BID
     Route: 048
  11. ACEBUTOLOL [Concomitant]
     Dosage: 100, QD
     Route: 048
  12. GLYBURIDE [Concomitant]
     Dosage: 10, BID
     Route: 048
  13. ASPIRIN [Concomitant]
     Dosage: 80 UNK, QD
  14. TENORMIN [Concomitant]
     Dosage: 2 DF, QD

REACTIONS (2)
  - SPEECH DISORDER [None]
  - SWOLLEN TONGUE [None]
